APPROVED DRUG PRODUCT: EQUIPIN
Active Ingredient: HOMATROPINE METHYLBROMIDE
Strength: 3MG
Dosage Form/Route: TABLET, CHEWABLE;ORAL
Application: A086310 | Product #001
Applicant: MISSION PHARMACAL CO
Approved: Approved Prior to Jan 1, 1982 | RLD: No | RS: No | Type: DISCN